FAERS Safety Report 7450712-0 (Version None)
Quarter: 2011Q2

REPORT INFORMATION
  Report Type: 
  Country: None (occurrence: None)
  Receive Date: 20110429
  Receipt Date: 20110429
  Transmission Date: 20111010
  Serious: Yes (Hospitalization)
  Sender: FDA-Public Use
  Company Number: None

PATIENT
  Age: 48 Year
  Sex: Male
  Weight: 81.3 kg

DRUGS (5)
  1. SIMVASTATIN [Concomitant]
  2. OXYCODONE [Concomitant]
  3. KLOR-CON [Concomitant]
  4. XELODA [Suspect]
     Indication: CONJUNCTIVAL OEDEMA
     Dosage: 500MG X 4 PO BID PO RECENT TREATMENT
     Route: 048
  5. COZAAR [Concomitant]

REACTIONS (5)
  - RETCHING [None]
  - DIARRHOEA [None]
  - DEHYDRATION [None]
  - PYREXIA [None]
  - VOMITING [None]
